FAERS Safety Report 18367179 (Version 1)
Quarter: 2020Q4

REPORT INFORMATION
  Report Type: Spontaneous
  Country: CN (occurrence: CN)
  Receive Date: 20201009
  Receipt Date: 20201009
  Transmission Date: 20210114
  Serious: Yes (Other)
  Sender: FDA-Public Use
  Company Number: CN-PFIZER INC-2020383586

PATIENT
  Age: 24 Year
  Sex: Female
  Weight: 50 kg

DRUGS (1)
  1. MISOPROSTOL. [Suspect]
     Active Substance: MISOPROSTOL
     Indication: ABORTION MISSED
     Dosage: 600 UG, 1X/DAY
     Route: 048
     Dates: start: 20200919, end: 20200919

REACTIONS (7)
  - Asthenia [Recovering/Resolving]
  - Product use in unapproved indication [Unknown]
  - Dizziness [Recovering/Resolving]
  - Chest discomfort [Unknown]
  - Chills [Unknown]
  - Off label use [Unknown]
  - Pyrexia [Recovering/Resolving]

NARRATIVE: CASE EVENT DATE: 20200919
